FAERS Safety Report 5337053-2 (Version None)
Quarter: 2007Q2

REPORT INFORMATION
  Report Type: 
  Country: None (occurrence: None)
  Receive Date: 20070529
  Receipt Date: 20070516
  Transmission Date: 20071010
  Serious: Yes (Hospitalization)
  Sender: FDA-Public Use
  Company Number: DE-ELI_LILLY_AND_COMPANY-DE200705004711

PATIENT
  Sex: Female

DRUGS (7)
  1. CYMBALTA [Suspect]
     Indication: DEPRESSION
     Dosage: 30 MG, DAILY (1/D)
     Route: 048
     Dates: start: 20070316, end: 20070410
  2. TAVOR [Concomitant]
     Dosage: UNK, 2/D
     Route: 048
     Dates: start: 20070309
  3. CLONT [Concomitant]
     Dosage: 400 MG, 3/D
     Route: 048
     Dates: start: 20070323, end: 20070326
  4. SOLIAN [Concomitant]
     Dosage: 200 MG, UNK
     Dates: start: 20070315
  5. ZOPICLON [Concomitant]
     Dosage: 7.5 MG, UNK
  6. ASPIRIN [Concomitant]
     Dosage: 100 MG, UNK
  7. EUNERPAN [Concomitant]
     Dosage: 25 MG, UNK

REACTIONS (3)
  - ALOPECIA AREATA [None]
  - BLISTER [None]
  - CLOSTRIDIAL INFECTION [None]
